FAERS Safety Report 24341913 (Version 1)
Quarter: 2024Q3

REPORT INFORMATION
  Report Type: Spontaneous
  Country: US (occurrence: US)
  Receive Date: 20240920
  Receipt Date: 20240920
  Transmission Date: 20241017
  Serious: Yes (Other)
  Sender: CHATTEM
  Company Number: US-OPELLA-2024OHG032191

PATIENT
  Age: 75 Year
  Sex: Male

DRUGS (1)
  1. TALC [Suspect]
     Active Substance: TALC
     Indication: Product used for unknown indication

REACTIONS (1)
  - Epithelioid mesothelioma [Unknown]

NARRATIVE: CASE EVENT DATE: 20231002
